FAERS Safety Report 20945524 (Version 3)
Quarter: 2022Q3

REPORT INFORMATION
  Report Type: Spontaneous
  Country: US (occurrence: US)
  Receive Date: 20220610
  Receipt Date: 20220712
  Transmission Date: 20221027
  Serious: Yes (Life-Threatening, Disabling, Other)
  Sender: FDA-Public Use
  Company Number: US-PFIZER INC-202200816197

PATIENT
  Age: 50 Year
  Sex: Male
  Weight: 137.89 kg

DRUGS (3)
  1. VANCOMYCIN HYDROCHLORIDE [Suspect]
     Active Substance: VANCOMYCIN HYDROCHLORIDE
     Indication: Joint injury
     Dosage: 1.75 G, 2X/DAY (1.75 GRAMS Q 12 HOURS IV)
     Route: 042
     Dates: start: 20220520
  2. VANCOMYCIN HYDROCHLORIDE [Suspect]
     Active Substance: VANCOMYCIN HYDROCHLORIDE
     Dosage: UNK
  3. CEFTRIAXONE [Concomitant]
     Active Substance: CEFTRIAXONE
     Dosage: 2 G (2 GRAMS Q24, IV)
     Route: 042

REACTIONS (3)
  - Renal injury [Unknown]
  - Blood creatinine increased [Unknown]
  - Drug level above therapeutic [Unknown]
